FAERS Safety Report 7919305-2 (Version None)
Quarter: 2011Q4

REPORT INFORMATION
  Report Type: 
  Country: None (occurrence: None)
  Receive Date: 20111116
  Receipt Date: 20111116
  Transmission Date: 20120403
  Serious: Yes (Hospitalization)
  Sender: FDA-Public Use
  Company Number: None

PATIENT
  Age: 62 Year
  Sex: Male
  Weight: 70 kg

DRUGS (1)
  1. CEFAZOLIN [Suspect]
     Indication: PREOPERATIVE CARE
     Dosage: 1 GM ONCE IV
     Route: 042
     Dates: start: 20101019, end: 20101019

REACTIONS (4)
  - LARYNGEAL OEDEMA [None]
  - DYSPNOEA [None]
  - SWOLLEN TONGUE [None]
  - ENDOTRACHEAL INTUBATION COMPLICATION [None]
